FAERS Safety Report 10667698 (Version 1)
Quarter: 2014Q4

REPORT INFORMATION
  Report Type: Spontaneous
  Country: US (occurrence: US)
  Receive Date: 20141222
  Receipt Date: 20141222
  Transmission Date: 20150529
  Serious: Yes (Hospitalization, Other)
  Sender: FDA-Public Use
  Company Number: US-GLAXOSMITHKLINE-US2014GSK038849

PATIENT
  Age: 36 Year
  Sex: Male

DRUGS (5)
  1. LAMOTRIGINE. [Suspect]
     Active Substance: LAMOTRIGINE
     Dosage: 13.5 G, UNK
  2. LAMOTRIGINE. [Suspect]
     Active Substance: LAMOTRIGINE
     Indication: PRODUCT USED FOR UNKNOWN INDICATION
     Dosage: 150 MG, BID
  3. EMTRICITABINE [Concomitant]
     Active Substance: EMTRICITABINE
  4. TENOFOVIR [Concomitant]
     Active Substance: TENOFOVIR
  5. RALTEGRAVIR [Concomitant]
     Active Substance: RALTEGRAVIR

REACTIONS (6)
  - Quadriplegia [Unknown]
  - Critical illness myopathy [Unknown]
  - Overdose [Unknown]
  - Dyskinesia [Unknown]
  - Generalised tonic-clonic seizure [Unknown]
  - Status epilepticus [Unknown]
